FAERS Safety Report 5157837-3 (Version None)
Quarter: 2006Q4

REPORT INFORMATION
  Report Type: 
  Country: None (occurrence: None)
  Receive Date: 20061120
  Receipt Date: 20061120
  Transmission Date: 20070319
  Serious: Yes (Hospitalization)
  Sender: FDA-Public Use
  Company Number: None

PATIENT
  Age: 82 Year
  Sex: Male
  Weight: 110.2241 kg

DRUGS (9)
  1. GASTROGRAFIN [Suspect]
     Indication: COMPUTERISED TOMOGRAM ABDOMEN
     Dosage: 20 ML X1 IV
     Route: 042
     Dates: start: 20061103, end: 20061103
  2. ALBUTEROL SULFATE AND IPRATROPIUM BROMIDE [Concomitant]
  3. LISINOPRIL [Concomitant]
  4. FUROSEMIDE [Concomitant]
  5. ISOSORBIDE [Concomitant]
  6. LEVOTHYROXINE SODIUM [Concomitant]
  7. SIMVASTATIN [Concomitant]
  8. FELODIPINE [Concomitant]
  9. GLYBURIDE [Concomitant]

REACTIONS (1)
  - RENAL TUBULAR NECROSIS [None]
